FAERS Safety Report 5739769-2 (Version None)
Quarter: 2008Q2

REPORT INFORMATION
  Report Type: 
  Country: None (occurrence: None)
  Receive Date: 20080512
  Receipt Date: 20080512
  Transmission Date: 20081010
  Serious: Yes (Life-Threatening, Hospitalization)
  Sender: FDA-Public Use
  Company Number: None

PATIENT
  Age: 53 Year
  Sex: Male
  Weight: 104.3273 kg

DRUGS (1)
  1. AMBIEN CR [Suspect]
     Indication: INSOMNIA
     Dosage: 1 TABLET AT BEDTIME
     Dates: start: 20070915, end: 20080410

REACTIONS (7)
  - ACCIDENT [None]
  - AMNESIA [None]
  - FEMUR FRACTURE [None]
  - HIP FRACTURE [None]
  - INTERNAL INJURY [None]
  - RIB FRACTURE [None]
  - STERNAL FRACTURE [None]
